FAERS Safety Report 9310843 (Version 1)
Quarter: 2013Q2

REPORT INFORMATION
  Report Type: Spontaneous
  Country: US (occurrence: None)
  Receive Date: 20130523
  Receipt Date: 20130523
  Transmission Date: 20140414
  Serious: Yes (Other)
  Sender: FDA-Public Use
  Company Number: None

PATIENT
  Sex: Male

DRUGS (1)
  1. TECFIDERA [Suspect]
     Route: 048
     Dates: start: 20120418

REACTIONS (3)
  - Headache [None]
  - Diarrhoea [None]
  - Blood glucose increased [None]
